FAERS Safety Report 24294870 (Version 1)
Quarter: 2024Q3

REPORT INFORMATION
  Report Type: Spontaneous
  Country: US (occurrence: US)
  Receive Date: 20240907
  Receipt Date: 20240907
  Transmission Date: 20241016
  Serious: No
  Sender: AIMMUNE
  Company Number: US-AIMMUNE THERAPEUTICS, INC.-2024AIMT00076

PATIENT

DRUGS (5)
  1. ZENPEP [Suspect]
     Active Substance: PANCRELIPASE AMYLASE\PANCRELIPASE LIPASE\PANCRELIPASE PROTEASE
     Indication: Pancreatic failure
     Dosage: UNK USP UNITS (TAKE TWO WITH MEALS AND ONE WITH)
     Route: 048
     Dates: start: 20240101
  2. ZENPEP [Suspect]
     Active Substance: PANCRELIPASE AMYLASE\PANCRELIPASE LIPASE\PANCRELIPASE PROTEASE
     Dosage: UNK USP UNITS (TAKE TWO WITH MEALS AND ONE WITH)
     Route: 048
  3. ZENPEP [Suspect]
     Active Substance: PANCRELIPASE AMYLASE\PANCRELIPASE LIPASE\PANCRELIPASE PROTEASE
     Dosage: UNK USP UNITS (TAKE TWO WITH MEALS AND ONE WITH), ONCE, LAST DOSE PRIOR EVENTS DIARRHEA, BELLY BUTTO
     Route: 048
     Dates: start: 20240101
  4. ZENPEP [Suspect]
     Active Substance: PANCRELIPASE AMYLASE\PANCRELIPASE LIPASE\PANCRELIPASE PROTEASE
     Dosage: UNK USP UNITS (HALF DOSE PRESCRIBED)
     Route: 048
  5. LOSARTAN [Concomitant]
     Active Substance: LOSARTAN\LOSARTAN POTASSIUM
     Indication: Hypertension
     Dosage: 50 MG, 1X/DAY

REACTIONS (4)
  - Intentional underdose [Unknown]
  - Diarrhoea [Recovered/Resolved]
  - Abdominal pain [Not Recovered/Not Resolved]
  - Constipation [Not Recovered/Not Resolved]

NARRATIVE: CASE EVENT DATE: 20240101
